FAERS Safety Report 5891805-9 (Version None)
Quarter: 2008Q3

REPORT INFORMATION
  Report Type: 
  Country: None (occurrence: None)
  Receive Date: 20080922
  Receipt Date: 20080910
  Transmission Date: 20090109
  Serious: Yes (Disabling)
  Sender: FDA-Public Use
  Company Number: US-ELI_LILLY_AND_COMPANY-US200807001494

PATIENT
  Age: 68 Year
  Sex: Female
  Weight: 68.481 kg

DRUGS (1)
  1. CYMBALTA [Suspect]
     Indication: DEPRESSION
     Dosage: 30 MG, DAILY (1/D)
     Dates: start: 20080101, end: 20080403

REACTIONS (3)
  - DRUG WITHDRAWAL SYNDROME [None]
  - FIBROMYALGIA [None]
  - NEUROPATHY PERIPHERAL [None]
